FAERS Safety Report 4847348-4 (Version None)
Quarter: 2005Q4

REPORT INFORMATION
  Report Type: 
  Country: None (occurrence: None)
  Receive Date: 20051207
  Receipt Date: 20051128
  Transmission Date: 20060501
  Serious: Yes (Other)
  Sender: FDA-Public Use
  Company Number: PA-ROCHE-426440

PATIENT
  Age: 24 Year
  Sex: Female

DRUGS (8)
  1. PEGYLATED INTERFERON NOS [Suspect]
     Indication: HEPATITIS C
     Route: 065
  2. RIBAVIRIN [Suspect]
     Indication: HEPATITIS C
     Route: 065
  3. VENLAFAXINE HCL [Concomitant]
  4. LEVOTHYROXINE SODIUM [Concomitant]
  5. IRON [Concomitant]
  6. ETHINYL ESTRADIOL TAB [Concomitant]
  7. ARTIFICIAL TEARS [Concomitant]
  8. HYPERTONIC SALINE [Concomitant]

REACTIONS (2)
  - CORNEAL CYST [None]
  - KERATOCONJUNCTIVITIS SICCA [None]
